FAERS Safety Report 9460858 (Version 1)
Quarter: 2013Q3

REPORT INFORMATION
  Report Type: Report from Study
  Country: US (occurrence: US)
  Receive Date: 20130816
  Receipt Date: 20130816
  Transmission Date: 20140515
  Serious: Yes (Other)
  Sender: FDA-Public Use
  Company Number: US-ROCHE-1262592

PATIENT
  Sex: 0

DRUGS (4)
  1. HERCEPTIN [Suspect]
     Indication: BREAST CANCER
     Route: 065
  2. ADRIAMYCIN [Concomitant]
  3. CYTOXAN [Concomitant]
  4. TAXOL [Concomitant]

REACTIONS (1)
  - Cardiotoxicity [Unknown]
